FAERS Safety Report 11153291 (Version 2)
Quarter: 2015Q3

REPORT INFORMATION
  Report Type: Report from Study
  Country: US (occurrence: US)
  Receive Date: 20150601
  Receipt Date: 20150819
  Transmission Date: 20151125
  Serious: Yes (Hospitalization)
  Sender: FDA-Public Use
  Company Number: US-SA-2015SA006870

PATIENT
  Age: 45 Year
  Sex: Female

DRUGS (3)
  1. AUBAGIO [Suspect]
     Active Substance: TERIFLUNOMIDE
     Indication: MULTIPLE SCLEROSIS
     Route: 048
     Dates: end: 201504
  2. AUBAGIO [Suspect]
     Active Substance: TERIFLUNOMIDE
     Indication: MULTIPLE SCLEROSIS
     Route: 048
     Dates: start: 20141215
  3. AUBAGIO [Suspect]
     Active Substance: TERIFLUNOMIDE
     Indication: MULTIPLE SCLEROSIS
     Route: 048
     Dates: start: 201504

REACTIONS (15)
  - Urinary incontinence [Recovered/Resolved]
  - Oral herpes [Not Recovered/Not Resolved]
  - Multiple sclerosis relapse [Recovered/Resolved]
  - Central nervous system lesion [Recovered/Resolved]
  - Sensory loss [Unknown]
  - Paraesthesia [Unknown]
  - Anxiety [Unknown]
  - Fatigue [Recovered/Resolved]
  - Lethargy [Recovered/Resolved]
  - Throat irritation [Unknown]
  - Diarrhoea [Unknown]
  - Faecal incontinence [Recovered/Resolved]
  - Bladder disorder [Recovering/Resolving]
  - Fatigue [Unknown]
  - Nausea [Unknown]

NARRATIVE: CASE EVENT DATE: 201502
